FAERS Safety Report 4504430-9 (Version None)
Quarter: 2004Q4

REPORT INFORMATION
  Report Type: 
  Country: None (occurrence: None)
  Receive Date: 20041117
  Receipt Date: 20041117
  Transmission Date: 20050328
  Serious: Yes (Hospitalization)
  Sender: FDA-Public Use
  Company Number: None

PATIENT
  Age: 77 Year
  Sex: Female
  Weight: 47.3102 kg

DRUGS (1)
  1. LEVOFLOXACIN [Suspect]
     Indication: URINARY TRACT INFECTION
     Dosage: 500 MG PO QDAY
     Route: 048

REACTIONS (1)
  - ELECTROCARDIOGRAM QT CORRECTED INTERVAL PROLONGED [None]
